FAERS Safety Report 12907522 (Version 6)
Quarter: 2017Q2

REPORT INFORMATION
  Report Type: Spontaneous
  Country: US (occurrence: US)
  Receive Date: 20161103
  Receipt Date: 20170522
  Transmission Date: 20170830
  Serious: Yes (Other)
  Sender: FDA-Public Use
  Company Number: PHEH2016US028580

PATIENT
  Age: 29 Year
  Sex: Female
  Weight: 99.77 kg

DRUGS (2)
  1. ZOFRAN [Suspect]
     Active Substance: ONDANSETRON HYDROCHLORIDE
     Indication: HYPEREMESIS GRAVIDARUM
     Dosage: UNK
     Route: 042
     Dates: start: 2001, end: 2002
  2. ZOFRAN [Suspect]
     Active Substance: ONDANSETRON HYDROCHLORIDE
     Indication: HYPEREMESIS GRAVIDARUM
     Dosage: 20 MG, QID
     Route: 048
     Dates: start: 2001, end: 2002

REACTIONS (14)
  - Infarction [Unknown]
  - Injury [Unknown]
  - Maternal exposure during pregnancy [Unknown]
  - Anxiety [Unknown]
  - Pain [Unknown]
  - Bronchitis [Unknown]
  - Respiratory distress [Unknown]
  - Abdominal pain upper [Unknown]
  - Tachycardia [Unknown]
  - Emotional distress [Unknown]
  - Insomnia [Unknown]
  - Cholelithiasis [Unknown]
  - Product use in unapproved indication [Unknown]
  - Upper respiratory tract infection [Unknown]

NARRATIVE: CASE EVENT DATE: 20020330
